FAERS Safety Report 20218568 (Version 1)
Quarter: 2021Q4

REPORT INFORMATION
  Report Type: Spontaneous
  Country: US (occurrence: US)
  Receive Date: 20211222
  Receipt Date: 20211222
  Transmission Date: 20220304
  Serious: No
  Sender: FDA-Public Use
  Company Number: US-BioHaven Pharmaceuticals-2021BHV000666

PATIENT
  Age: 55 Year
  Sex: Female

DRUGS (1)
  1. NURTEC ODT [Suspect]
     Active Substance: RIMEGEPANT SULFATE
     Indication: Product used for unknown indication
     Dosage: TOOK THREE DOSES AND EXPERIENCED THE ADVERSE EVENTS ON ALL THREE OCCASIONS. INSTRUCTED TO TAKE ONE T
     Route: 065

REACTIONS (4)
  - Nausea [Unknown]
  - Headache [Recovering/Resolving]
  - Drug ineffective [Unknown]
  - Medication error [Unknown]
